FAERS Safety Report 6081295-8 (Version None)
Quarter: 2009Q1

REPORT INFORMATION
  Report Type: 
  Country: None (occurrence: None)
  Receive Date: 20090218
  Receipt Date: 20090211
  Transmission Date: 20090719
  Serious: Yes (Life-Threatening)
  Sender: FDA-Public Use
  Company Number: TR-RANBAXY-2009RR-21467

PATIENT
  Age: 17 Year
  Sex: Male

DRUGS (3)
  1. ISOTRETINOIN [Suspect]
     Indication: SUICIDE ATTEMPT
     Dosage: 320 MG, UNK
     Route: 048
  2. ISOTRETINOIN [Concomitant]
     Indication: ACNE
     Dosage: 40 MG, UNK
  3. FLUOXETINE HCL [Concomitant]
     Indication: DEPRESSION

REACTIONS (4)
  - DIZZINESS [None]
  - MYALGIA [None]
  - OVERDOSE [None]
  - XEROSIS [None]
